FAERS Safety Report 5985684-9 (Version None)
Quarter: 2008Q4

REPORT INFORMATION
  Report Type: 
  Country: None (occurrence: None)
  Receive Date: 20081208
  Receipt Date: 20080328
  Transmission Date: 20090506
  Serious: No
  Sender: FDA-Public Use
  Company Number: US-AMGEN-KDL271752

PATIENT
  Sex: Female

DRUGS (1)
  1. ENBREL [Suspect]
     Indication: JUVENILE ARTHRITIS
     Route: 058
     Dates: start: 20050701

REACTIONS (5)
  - GASTROENTERITIS VIRAL [None]
  - INJECTION SITE PRURITUS [None]
  - INJECTION SITE REACTION [None]
  - JUVENILE ARTHRITIS [None]
  - NASOPHARYNGITIS [None]
